FAERS Safety Report 19310262 (Version 2)
Quarter: 2021Q3

REPORT INFORMATION
  Report Type: Spontaneous
  Country: US (occurrence: US)
  Receive Date: 20210526
  Receipt Date: 20210707
  Transmission Date: 20211014
  Serious: No
  Sender: FDA-Public Use
  Company Number: US-ASTRAZENECA-2021A374696

PATIENT
  Sex: Male
  Weight: 104.3 kg

DRUGS (1)
  1. SYMBICORT [Suspect]
     Active Substance: BUDESONIDE\FORMOTEROL FUMARATE DIHYDRATE
     Indication: ASTHMA
     Dosage: 160/4.5 MCG 2 PUFFS EITHER ONCE OR TWICE PER DAY
     Route: 055

REACTIONS (6)
  - Emotional distress [Unknown]
  - Device issue [Unknown]
  - Insurance issue [Unknown]
  - Drug dose omission by device [Unknown]
  - Intentional product misuse [Unknown]
  - Dyspnoea [Unknown]
